FAERS Safety Report 5075982-8 (Version None)
Quarter: 2006Q3

REPORT INFORMATION
  Report Type: 
  Country: None (occurrence: None)
  Receive Date: 20060808
  Receipt Date: 20060808
  Transmission Date: 20061208
  Serious: No
  Sender: FDA-Public Use
  Company Number: None

PATIENT
  Age: 40 Year
  Sex: Female
  Weight: 79.3795 kg

DRUGS (1)
  1. TOPAMAX [Suspect]
     Dosage: ONE TAB AM, TWO TAB PM
     Dates: start: 20060506, end: 20060807

REACTIONS (1)
  - PHOTOSENSITIVITY REACTION [None]
